FAERS Safety Report 5876147-X (Version None)
Quarter: 2008Q3

REPORT INFORMATION
  Report Type: 
  Country: None (occurrence: None)
  Receive Date: 20080910
  Receipt Date: 20080905
  Transmission Date: 20090109
  Serious: Yes (Other)
  Sender: FDA-Public Use
  Company Number: FR-WYE-G02002608

PATIENT
  Sex: Female
  Weight: 50 kg

DRUGS (3)
  1. EFFEXOR [Suspect]
     Indication: DEPRESSION
     Route: 048
     Dates: start: 20060101, end: 20080731
  2. EFFEXOR [Suspect]
     Route: 048
     Dates: start: 20080801, end: 20080810
  3. EFFEXOR [Suspect]
     Route: 048
     Dates: start: 20080811

REACTIONS (1)
  - PREMATURE MENOPAUSE [None]
